FAERS Safety Report 5968500-0 (Version None)
Quarter: 2008Q4

REPORT INFORMATION
  Report Type: 
  Country: None (occurrence: None)
  Receive Date: 20081126
  Receipt Date: 20081117
  Transmission Date: 20090506
  Serious: Yes (Hospitalization)
  Sender: FDA-Public Use
  Company Number: CN-BAXTER-2008BH012562

PATIENT
  Age: 14 Year
  Sex: Male

DRUGS (4)
  1. SODIUM CHLORIDE 0.9% IN PLASTIC CONTAINER [Suspect]
     Indication: COUGH
     Route: 042
     Dates: start: 20081116, end: 20081116
  2. SODIUM CHLORIDE 0.9% IN PLASTIC CONTAINER [Suspect]
     Indication: PYREXIA
     Route: 042
     Dates: start: 20081116, end: 20081116
  3. AZTERONAM [Suspect]
     Indication: COUGH
     Route: 042
     Dates: start: 20081116, end: 20081116
  4. AZTERONAM [Suspect]
     Indication: PYREXIA
     Route: 042
     Dates: start: 20081116, end: 20081116

REACTIONS (3)
  - CHILLS [None]
  - CONVULSION [None]
  - PYREXIA [None]
